FAERS Safety Report 10917574 (Version 1)
Quarter: 2015Q1

REPORT INFORMATION
  Report Type: Spontaneous
  Country: US (occurrence: None)
  Receive Date: 20150312
  Receipt Date: 20150312
  Transmission Date: 20150721
  Serious: Yes (Other)
  Sender: FDA-Public Use
  Company Number: None

PATIENT
  Age: 2 Year
  Sex: Male
  Weight: 20.41 kg

DRUGS (3)
  1. CHILDRENS TYLENOL [Suspect]
     Active Substance: ACETAMINOPHEN
     Indication: PYREXIA
     Dosage: ONLY WHEN FEVER WAS PRESENT.
  2. MULTIVITAMINS [Concomitant]
     Active Substance: VITAMINS
  3. CHILDRENS TYLENOL [Suspect]
     Active Substance: ACETAMINOPHEN
     Indication: TEETHING
     Dosage: ONLY WHEN FEVER WAS PRESENT.

REACTIONS (1)
  - Metal poisoning [None]

NARRATIVE: CASE EVENT DATE: 20140908
